FAERS Safety Report 25777490 (Version 1)
Quarter: 2025Q3

REPORT INFORMATION
  Report Type: Spontaneous
  Country: GB (occurrence: GB)
  Receive Date: 20250909
  Receipt Date: 20250909
  Transmission Date: 20251021
  Serious: Yes (Other)
  Sender: TEVA
  Company Number: None

PATIENT
  Age: 45 Year
  Sex: Female
  Weight: 58 kg

DRUGS (4)
  1. TRIMETHOPRIM [Suspect]
     Active Substance: TRIMETHOPRIM
     Indication: Cystitis
     Dosage: MORNING AND NIGHT
     Route: 065
     Dates: start: 20250826, end: 20250828
  2. INSULIN NOS [Concomitant]
     Active Substance: INSULIN NOS
     Indication: Adverse drug reaction
     Dates: start: 20200331
  3. FERROUS FUMARATE [Concomitant]
     Active Substance: FERROUS FUMARATE
     Indication: Adverse drug reaction
     Dates: start: 20240331
  4. LEVOTHYROXINE [Concomitant]
     Active Substance: LEVOTHYROXINE
     Indication: Adverse drug reaction
     Dates: start: 20050531

REACTIONS (7)
  - Anxiety [Unknown]
  - Headache [Recovering/Resolving]
  - Pain [Unknown]
  - Stress [Unknown]
  - Anger [Unknown]
  - Depressed mood [Unknown]
  - Tremor [Unknown]

NARRATIVE: CASE EVENT DATE: 20250826
